FAERS Safety Report 7410302-2 (Version None)
Quarter: 2011Q2

REPORT INFORMATION
  Report Type: 
  Country: None (occurrence: None)
  Receive Date: 20110412
  Receipt Date: 20110411
  Transmission Date: 20111010
  Serious: Yes (Other)
  Sender: FDA-Public Use
  Company Number: GB-ALLERGAN-1105014US

PATIENT

DRUGS (1)
  1. BOTOXA? [Suspect]
     Indication: PRODUCT USED FOR UNKNOWN INDICATION
     Dosage: UNK
     Route: 030
     Dates: start: 20110326, end: 20110326

REACTIONS (1)
  - CEREBROVASCULAR ACCIDENT [None]
